FAERS Safety Report 7601630-6 (Version None)
Quarter: 2011Q2

REPORT INFORMATION
  Report Type: 
  Country: None (occurrence: None)
  Receive Date: 20110630
  Receipt Date: 20110615
  Transmission Date: 20111010
  Serious: No
  Sender: FDA-Public Use
  Company Number: SPI201100172

PATIENT
  Age: 62 Year
  Sex: Female

DRUGS (1)
  1. AMITIZA [Suspect]
     Dosage: 24 MCG, QD, ORAL
     Route: 048
     Dates: start: 20110604

REACTIONS (4)
  - CHEST DISCOMFORT [None]
  - UPPER-AIRWAY COUGH SYNDROME [None]
  - DYSPNOEA [None]
  - ERYTHEMA [None]
